FAERS Safety Report 14928361 (Version 1)
Quarter: 2018Q2

REPORT INFORMATION
  Report Type: Spontaneous
  Country: US (occurrence: US)
  Receive Date: 20180523
  Receipt Date: 20180523
  Transmission Date: 20180711
  Serious: No
  Sender: FDA-Public Use
  Company Number: US-JNJFOC-20180513235

PATIENT
  Age: 26 Year
  Sex: Male

DRUGS (8)
  1. REMERON [Concomitant]
     Active Substance: MIRTAZAPINE
     Dosage: AT BEDTIME
     Route: 065
  2. ABILIFY [Concomitant]
     Active Substance: ARIPIPRAZOLE
     Route: 065
  3. SEROQUEL [Concomitant]
     Active Substance: QUETIAPINE FUMARATE
     Route: 065
  4. RISPERDAL [Concomitant]
     Active Substance: RISPERIDONE
     Route: 065
  5. COGENTIN [Concomitant]
     Active Substance: BENZTROPINE MESYLATE
     Dosage: 2 MG/ -/ 1 MG/ BID/
     Route: 065
  6. ZYPREXA [Concomitant]
     Active Substance: OLANZAPINE
     Route: 065
  7. INVEGA SUSTENNA [Suspect]
     Active Substance: PALIPERIDONE PALMITATE
     Indication: PRODUCT USED FOR UNKNOWN INDICATION
     Route: 030
  8. DEPAKOTE [Concomitant]
     Active Substance: DIVALPROEX SODIUM
     Dosage: AT BEDTIME
     Route: 065

REACTIONS (3)
  - Drug dose omission [Unknown]
  - Inappropriate schedule of drug administration [Unknown]
  - Off label use [Unknown]
